FAERS Safety Report 16568468 (Version 3)
Quarter: 2019Q4

REPORT INFORMATION
  Report Type: Report from Study
  Country: JP (occurrence: JP)
  Receive Date: 20190712
  Receipt Date: 20191030
  Transmission Date: 20200122
  Serious: Yes (Other)
  Sender: FDA-Public Use
  Company Number: PHJP2019JP005615

PATIENT
  Age: 50 Year
  Sex: Female

DRUGS (16)
  1. SIGNIFOR LAR [Suspect]
     Active Substance: PASIREOTIDE
     Dosage: 40 MG, UNK
     Route: 030
     Dates: start: 20181219
  2. MAGMITT [Concomitant]
     Active Substance: MAGNESIUM OXIDE
     Indication: PRODUCT USED FOR UNKNOWN INDICATION
     Dosage: 990 MG, UNK
     Route: 048
  3. SIGNIFOR LAR [Suspect]
     Active Substance: PASIREOTIDE
     Dosage: 40 MG, UNK
     Route: 030
     Dates: start: 20180704
  4. SIGNIFOR LAR [Suspect]
     Active Substance: PASIREOTIDE
     Dosage: 40 MG, UNK
     Route: 030
     Dates: start: 20181114
  5. SIGNIFOR LAR [Suspect]
     Active Substance: PASIREOTIDE
     Dosage: 40 MG, UNK
     Route: 030
     Dates: start: 20190508
  6. SIGNIFOR LAR [Suspect]
     Active Substance: PASIREOTIDE
     Dosage: 40 MG, UNK
     Route: 030
     Dates: start: 20180606
  7. ATORVASTATIN [Concomitant]
     Active Substance: ATORVASTATIN
     Indication: PRODUCT USED FOR UNKNOWN INDICATION
     Dosage: 5 MG, UNK
     Route: 048
  8. SIGNIFOR LAR [Suspect]
     Active Substance: PASIREOTIDE
     Dosage: 40 MG, UNK
     Route: 030
     Dates: start: 20181010
  9. SIGNIFOR LAR [Suspect]
     Active Substance: PASIREOTIDE
     Dosage: 40 MG, UNK
     Route: 030
     Dates: start: 20190123
  10. SIGNIFOR LAR [Suspect]
     Active Substance: PASIREOTIDE
     Dosage: 40 MG, UNK
     Route: 030
     Dates: start: 20190227
  11. SIGNIFOR LAR [Suspect]
     Active Substance: PASIREOTIDE
     Dosage: 40 MG, UNK
     Route: 030
     Dates: start: 20190403
  12. THYRADIN S [Concomitant]
     Active Substance: LEVOTHYROXINE SODIUM
     Indication: SECONDARY HYPOTHYROIDISM
     Dosage: 50 UG, UNK
     Route: 048
  13. EQUA [Concomitant]
     Active Substance: VILDAGLIPTIN
     Indication: PROPHYLAXIS
     Dosage: 100 MG, UNK
     Route: 048
     Dates: start: 20180508, end: 20180605
  14. SIGNIFOR LAR [Suspect]
     Active Substance: PASIREOTIDE
     Dosage: 40 MG, UNK
     Route: 030
     Dates: start: 20180801
  15. SIGNIFOR LAR [Suspect]
     Active Substance: PASIREOTIDE
     Dosage: 40 MG, UNK
     Route: 030
     Dates: start: 20180905
  16. SIGNIFOR LAR [Suspect]
     Active Substance: PASIREOTIDE
     Indication: ACROMEGALY
     Dosage: 40 MG, UNK
     Route: 030
     Dates: start: 20180508

REACTIONS (2)
  - Diabetes mellitus [Recovering/Resolving]
  - Liver disorder [Recovering/Resolving]

NARRATIVE: CASE EVENT DATE: 20180606
